FAERS Safety Report 9403397 (Version 1)
Quarter: 2013Q3

REPORT INFORMATION
  Report Type: Spontaneous
  Country: FR (occurrence: FR)
  Receive Date: 20130716
  Receipt Date: 20130716
  Transmission Date: 20140515
  Serious: Yes (Hospitalization)
  Sender: FDA-Public Use
  Company Number: FR-LUNDBECK-DKLU1092412

PATIENT
  Age: 34 Year
  Sex: Female

DRUGS (15)
  1. SABRIL (TABLET) [Suspect]
     Indication: EPILEPSY
     Route: 048
     Dates: end: 20130407
  2. SABRIL (TABLET) [Suspect]
     Route: 048
     Dates: start: 20130410
  3. EUPANTOL [Suspect]
     Indication: OESOPHAGEAL ULCER
     Route: 050
     Dates: start: 20130408, end: 20130410
  4. EUPANTOL [Suspect]
     Route: 048
     Dates: start: 20130411, end: 20130416
  5. TRILEPTAL [Suspect]
     Indication: EPILEPSY
     Route: 048
     Dates: end: 20130407
  6. TRILEPTAL [Suspect]
     Dates: start: 20130410
  7. ZONEGRAN [Suspect]
     Indication: EPILEPSY
     Route: 048
     Dates: start: 2011, end: 20130407
  8. ZONEGRAN [Suspect]
     Dates: start: 20130410
  9. RIVOTRIL [Concomitant]
     Indication: PRODUCT USED FOR UNKNOWN INDICATION
     Dates: start: 2011, end: 20130407
  10. OMEPRAZOLE [Concomitant]
     Indication: PRODUCT USED FOR UNKNOWN INDICATION
     Dates: start: 20130314
  11. FLUISEDAL [Concomitant]
     Indication: PRODUCT USED FOR UNKNOWN INDICATION
     Dates: start: 20130314
  12. RHINOTROPHYL [Concomitant]
     Indication: PRODUCT USED FOR UNKNOWN INDICATION
     Dates: start: 20130314
  13. TIAPROFENIC ACID [Concomitant]
     Indication: PRODUCT USED FOR UNKNOWN INDICATION
     Dates: start: 20130314
  14. CEFUROXIME [Concomitant]
     Indication: PRODUCT USED FOR UNKNOWN INDICATION
     Dates: start: 20130314
  15. DEPAKINE [Concomitant]
     Indication: PRODUCT USED FOR UNKNOWN INDICATION
     Dates: end: 20130410

REACTIONS (5)
  - Pancytopenia [Recovered/Resolved]
  - Folate deficiency [Recovered/Resolved]
  - Gastrointestinal haemorrhage [None]
  - Oesophagitis ulcerative [None]
  - Fungal infection [None]
